FAERS Safety Report 17556264 (Version 2)
Quarter: 2020Q2

REPORT INFORMATION
  Report Type: Spontaneous
  Country: US (occurrence: US)
  Receive Date: 20200318
  Receipt Date: 20200407
  Transmission Date: 20200713
  Serious: No
  Sender: FDA-Public Use
  Company Number: US-TRIS PHARMA, INC.-20US008859

PATIENT

DRUGS (3)
  1. PROMETHAZINE HCL + CODEINE PHOSPHATE [Suspect]
     Active Substance: CODEINE PHOSPHATE\PROMETHAZINE HYDROCHLORIDE
     Indication: HEADACHE
  2. PROMETHAZINE HCL + CODEINE PHOSPHATE [Suspect]
     Active Substance: CODEINE PHOSPHATE\PROMETHAZINE HYDROCHLORIDE
     Indication: PAIN
  3. PROMETHAZINE HCL + CODEINE PHOSPHATE [Suspect]
     Active Substance: CODEINE PHOSPHATE\PROMETHAZINE HYDROCHLORIDE
     Indication: COUGH
     Dosage: UNK
     Route: 065
     Dates: start: 2017

REACTIONS (5)
  - Urinary retention [Unknown]
  - Headache [Unknown]
  - Emotional distress [Unknown]
  - Somnolence [Unknown]
  - Drug dependence [Unknown]
